FAERS Safety Report 21454614 (Version 2)
Quarter: 2022Q4

REPORT INFORMATION
  Report Type: Spontaneous
  Country: TN (occurrence: TN)
  Receive Date: 20221013
  Receipt Date: 20221107
  Transmission Date: 20230113
  Serious: Yes (Other)
  Sender: FDA-Public Use
  Company Number: TN-BIOGEN-2022BI01161328

PATIENT
  Age: 37 Year
  Sex: Female

DRUGS (4)
  1. TYSABRI [Suspect]
     Active Substance: NATALIZUMAB
     Indication: Relapsing-remitting multiple sclerosis
     Route: 050
     Dates: start: 201806
  2. BROMAZEPAM [Concomitant]
     Active Substance: BROMAZEPAM
     Indication: Product used for unknown indication
     Route: 050
  3. VITAMIN D [Concomitant]
     Active Substance: VITAMIN D NOS
     Indication: Product used for unknown indication
     Route: 050
  4. CALCIUM [Concomitant]
     Active Substance: CALCIUM
     Indication: Product used for unknown indication
     Route: 050

REACTIONS (1)
  - Laryngeal squamous cell carcinoma [Unknown]

NARRATIVE: CASE EVENT DATE: 20220923
